FAERS Safety Report 25307505 (Version 1)
Quarter: 2025Q2

REPORT INFORMATION
  Report Type: Spontaneous
  Country: US (occurrence: US)
  Receive Date: 20250513
  Receipt Date: 20250513
  Transmission Date: 20250717
  Serious: Yes (Hospitalization)
  Sender: AMGEN
  Company Number: US-AMGEN-USASP2025091423

PATIENT
  Age: 72 Year
  Sex: Female

DRUGS (9)
  1. DARBEPOETIN ALFA [Suspect]
     Active Substance: DARBEPOETIN ALFA
     Indication: Anaemia
     Dosage: 100 MILLIGRAM, QD
     Route: 058
  2. DARBEPOETIN ALFA [Suspect]
     Active Substance: DARBEPOETIN ALFA
     Dosage: 100 MILLIGRAM, QWK
     Route: 058
  3. ALBUMIN HUMAN [Concomitant]
     Active Substance: ALBUMIN HUMAN
  4. TRANEXAMIC ACID [Concomitant]
     Active Substance: TRANEXAMIC ACID
  5. VITAMIN B12 [Concomitant]
     Active Substance: CYANOCOBALAMIN
  6. VITAMINS [Concomitant]
     Active Substance: VITAMINS
  7. ASCORBIC ACID [Concomitant]
     Active Substance: ASCORBIC ACID
     Dosage: 500 MILLIGRAM, QD
  8. FOLIC ACID [Concomitant]
     Active Substance: FOLIC ACID
     Dosage: 1 MILLIGRAM, QD
  9. IRON [Concomitant]
     Active Substance: IRON
     Dosage: 100 MILLIGRAM, QD
     Route: 040

REACTIONS (2)
  - Incarcerated hernia [Unknown]
  - Off label use [Unknown]
